FAERS Safety Report 8012851-5 (Version None)
Quarter: 2011Q4

REPORT INFORMATION
  Report Type: 
  Country: None (occurrence: None)
  Receive Date: 20111229
  Receipt Date: 20111219
  Transmission Date: 20120403
  Serious: Yes (Hospitalization)
  Sender: FDA-Public Use
  Company Number: KR-BRISTOL-MYERS SQUIBB COMPANY-16305021

PATIENT
  Age: 74 Year
  Sex: Male

DRUGS (3)
  1. CARBIDOPA + LEVODOPA [Suspect]
     Indication: PARKINSON'S DISEASE
     Dosage: 1 DF: 250/25MG INCREASED TO 250/25 TO 12TABS/DAY REDUCED TO 150/25MG 3/DAY
  2. LEVODOPA + BENSERAZIDE [Suspect]
     Indication: PARKINSON'S DISEASE
     Dosage: 1 DF: 100/25MG
  3. LEVODOPA [Suspect]
     Indication: PARKINSON'S DISEASE

REACTIONS (3)
  - DYSKINESIA [None]
  - RHABDOMYOLYSIS [None]
  - RENAL FAILURE ACUTE [None]
